FAERS Safety Report 8541904-8 (Version None)
Quarter: 2012Q3

REPORT INFORMATION
  Report Type: 
  Country: None (occurrence: None)
  Receive Date: 20120726
  Receipt Date: 20111031
  Transmission Date: 20120928
  Serious: No
  Sender: FDA-Public Use
  Company Number: US-ASTRAZENECA-2011SE55123

PATIENT
  Age: 40 Year
  Sex: Female
  Weight: 68 kg

DRUGS (7)
  1. LAMINDA [Concomitant]
     Indication: MIGRAINE
  2. SEROQUEL [Suspect]
     Dosage: TOTAL DAILY DOSE 400 MG, 100 MG MORNING AND 300 MG AT NIGHT
     Route: 048
  3. MAXALT [Concomitant]
     Indication: MIGRAINE
  4. SEROQUEL [Suspect]
     Route: 048
     Dates: start: 20090101
  5. KLONOPIN [Concomitant]
     Indication: MAJOR DEPRESSION
  6. LAMICTAL [Concomitant]
     Indication: MAJOR DEPRESSION
  7. ZOLOFT [Concomitant]
     Indication: MAJOR DEPRESSION

REACTIONS (4)
  - DIZZINESS [None]
  - MAJOR DEPRESSION [None]
  - DISORIENTATION [None]
  - SEDATION [None]
